FAERS Safety Report 9516103 (Version 1)
Quarter: 2013Q3

REPORT INFORMATION
  Report Type: Spontaneous
  Country: FR (occurrence: FR)
  Receive Date: 20130911
  Receipt Date: 20130911
  Transmission Date: 20140515
  Serious: Yes (Other)
  Sender: FDA-Public Use
  Company Number: FR-PFIZER INC-2013256413

PATIENT
  Age: 84 Year
  Sex: Male

DRUGS (19)
  1. ZYVOXID [Suspect]
     Indication: STAPHYLOCOCCAL SEPSIS
     Dosage: 600 MG, 2X/DAY
     Route: 042
     Dates: start: 20130801, end: 20130806
  2. LOVENOX [Suspect]
     Dosage: 4000 IU, 2X/DAY
     Dates: start: 20130808, end: 20130813
  3. KARDEGIC [Suspect]
     Dosage: 75 MG, 1X/DAY
     Route: 048
     Dates: end: 20130812
  4. ALPRESS [Concomitant]
  5. AMLODIPINE [Concomitant]
  6. BURINEX [Concomitant]
  7. ORBENINE [Concomitant]
  8. DIFFU K [Concomitant]
  9. DOLIPRANE [Concomitant]
  10. OXYCONTIN [Concomitant]
  11. OFLOCET [Concomitant]
  12. LYRICA [Concomitant]
  13. INSULIN [Concomitant]
  14. TRANSIPEG [Concomitant]
  15. FUCIDINE [Concomitant]
  16. TRIMEBUTINE [Concomitant]
  17. PHLOROGLUCINOL [Concomitant]
  18. ALPRAZOLAM [Concomitant]
  19. LEVOTHYROX [Concomitant]

REACTIONS (2)
  - Thrombocytopenia [Recovered/Resolved]
  - Haemorrhage [Recovered/Resolved]
